FAERS Safety Report 19909287 (Version 1)
Quarter: 2021Q4

REPORT INFORMATION
  Report Type: Spontaneous
  Country: US (occurrence: US)
  Receive Date: 20211001
  Receipt Date: 20211001
  Transmission Date: 20220303
  Serious: No
  Sender: FDA-Public Use
  Company Number: US-AMARIN PHARMA, INC.-2021AMR000146

PATIENT
  Age: 73 Year
  Sex: Female
  Weight: 67.65 kg

DRUGS (1)
  1. VASCEPA [Suspect]
     Active Substance: ICOSAPENT ETHYL
     Indication: Blood triglycerides increased
     Dates: end: 20210209

REACTIONS (7)
  - Haematuria [Unknown]
  - Renal cyst [Unknown]
  - Cyst [Recovering/Resolving]
  - Vaginal odour [Recovering/Resolving]
  - Gait disturbance [Recovered/Resolved]
  - Rash [Recovered/Resolved]
  - Weight increased [Unknown]

NARRATIVE: CASE EVENT DATE: 20201201
